FAERS Safety Report 25814063 (Version 1)
Quarter: 2025Q3

REPORT INFORMATION
  Report Type: Spontaneous
  Country: US (occurrence: None)
  Receive Date: 20250917
  Receipt Date: 20250917
  Transmission Date: 20251020
  Serious: Yes (Hospitalization)
  Sender: FDA-CTU
  Company Number: None

PATIENT
  Age: 79 Year
  Sex: Female

DRUGS (2)
  1. TAVNEOS [Suspect]
     Active Substance: AVACOPAN
     Dosage: FREQUENCY : TWICE A DAY;?
     Route: 048
     Dates: start: 20250912
  2. TAVNEOS [Concomitant]
     Active Substance: AVACOPAN
     Dates: start: 20250912

REACTIONS (6)
  - Anti-neutrophil cytoplasmic antibody positive vasculitis [None]
  - Renal disorder [None]
  - Lung disorder [None]
  - Full blood count decreased [None]
  - Transfusion [None]
  - Product preparation issue [None]

NARRATIVE: CASE EVENT DATE: 20250917
